FAERS Safety Report 14579339 (Version 1)
Quarter: 2018Q1

REPORT INFORMATION
  Report Type: Spontaneous
  Country: US (occurrence: US)
  Receive Date: 20180227
  Receipt Date: 20180227
  Transmission Date: 20180509
  Serious: No
  Sender: FDA-Public Use
  Company Number: US-SA-2018SA011024

PATIENT
  Age: 68 Year
  Sex: Female

DRUGS (8)
  1. SOLOSTAR [Suspect]
     Active Substance: DEVICE
     Indication: TYPE 2 DIABETES MELLITUS
     Dates: start: 20171222
  2. GLUCOTROL XL [Concomitant]
     Active Substance: GLIPIZIDE
     Route: 065
  3. SOLIQUA 100/33 [Suspect]
     Active Substance: INSULIN GLARGINE\LIXISENATIDE
     Indication: TYPE 2 DIABETES MELLITUS
     Dosage: DOSE:21 UNIT(S)
     Dates: start: 201712, end: 201801
  4. SOLIQUA 100/33 [Suspect]
     Active Substance: INSULIN GLARGINE\LIXISENATIDE
     Indication: TYPE 2 DIABETES MELLITUS
     Dosage: DOSE:17 UNIT(S)
     Dates: start: 20171222
  5. SOLOSTAR [Suspect]
     Active Substance: DEVICE
     Indication: TYPE 2 DIABETES MELLITUS
     Dates: start: 201801
  6. GLUCOPHAGE XR [Concomitant]
     Active Substance: METFORMIN HYDROCHLORIDE
     Route: 065
  7. SOLOSTAR [Suspect]
     Active Substance: DEVICE
     Indication: TYPE 2 DIABETES MELLITUS
     Dates: start: 201712, end: 201801
  8. SOLIQUA 100/33 [Suspect]
     Active Substance: INSULIN GLARGINE\LIXISENATIDE
     Indication: TYPE 2 DIABETES MELLITUS
     Dosage: DOSE:19 UNIT(S)
     Dates: start: 201801

REACTIONS (9)
  - Blood glucose decreased [Recovering/Resolving]
  - Injection site pain [Recovering/Resolving]
  - Nausea [Recovering/Resolving]
  - Diarrhoea [Recovered/Resolved]
  - Product use issue [Unknown]
  - Blood glucose increased [Recovering/Resolving]
  - Injection site erythema [Recovering/Resolving]
  - Hernia [Unknown]
  - Product storage error [Unknown]

NARRATIVE: CASE EVENT DATE: 201712
